FAERS Safety Report 6717692-4 (Version None)
Quarter: 2010Q2

REPORT INFORMATION
  Report Type: 
  Country: None (occurrence: None)
  Receive Date: 20100510
  Receipt Date: 20100429
  Transmission Date: 20101027
  Serious: Yes (Other)
  Sender: FDA-Public Use
  Company Number: FR-ROCHE-700743

PATIENT
  Sex: Male

DRUGS (1)
  1. MIRCERA [Suspect]
     Dosage: DOSE: 1 DOSEFORM
     Route: 065
     Dates: start: 20100314

REACTIONS (3)
  - ANAPHYLACTIC SHOCK [None]
  - DERMATOSIS [None]
  - OEDEMA [None]
